FAERS Safety Report 13097353 (Version 4)
Quarter: 2017Q1

REPORT INFORMATION
  Report Type: Spontaneous
  Country: FR (occurrence: FR)
  Receive Date: 20170109
  Receipt Date: 20170223
  Transmission Date: 20170428
  Serious: Yes (Other)
  Sender: FDA-Public Use
  Company Number: FR-PFIZER INC-2017005145

PATIENT
  Age: 62 Year
  Sex: Female

DRUGS (5)
  1. XALATAN [Suspect]
     Active Substance: LATANOPROST
     Indication: OCULAR HYPERTENSION
     Dosage: UNK
  2. FLUOXETINE [Concomitant]
     Active Substance: FLUOXETINE HYDROCHLORIDE
     Dosage: UNK
     Dates: start: 20160526
  3. LEXOMIL [Concomitant]
     Active Substance: BROMAZEPAM
     Dosage: UNK
     Dates: start: 20150526
  4. MONOPROST [Suspect]
     Active Substance: LATANOPROST
     Indication: INTRAOCULAR PRESSURE INCREASED
     Dosage: 2 GTT, 1X/DAY
     Dates: start: 20160104, end: 20160417
  5. IMOVANE [Concomitant]
     Active Substance: ZOPICLONE
     Dosage: UNK
     Dates: start: 20150526

REACTIONS (7)
  - Malaise [Unknown]
  - Dysphonia [Unknown]
  - Cataract [Unknown]
  - Asthma [Recovered/Resolved]
  - Bradycardia [Unknown]
  - Lacrimation increased [Unknown]
  - Eye oedema [Unknown]

NARRATIVE: CASE EVENT DATE: 2015
